FAERS Safety Report 5765775-8 (Version None)
Quarter: 2008Q2

REPORT INFORMATION
  Report Type: 
  Country: None (occurrence: None)
  Receive Date: 20080611
  Receipt Date: 20080530
  Transmission Date: 20081010
  Serious: Yes (Death)
  Sender: FDA-Public Use
  Company Number: FR-PFIZER INC-2008046455

PATIENT
  Age: 59 Year
  Sex: Male

DRUGS (5)
  1. SOLU-MEDROL [Suspect]
     Indication: PREMEDICATION
     Dosage: TEXT:60 MG DAILY
     Route: 042
     Dates: start: 20070222, end: 20070222
  2. CISPLATIN [Suspect]
     Indication: BRONCHIAL CARCINOMA
     Dosage: TEXT:50 MG DAILY
     Route: 042
     Dates: start: 20070222, end: 20070222
  3. ETOPOSIDE [Suspect]
     Indication: BRONCHIAL CARCINOMA
     Dosage: TEXT:175 MG DAILY
     Route: 042
     Dates: start: 20070221, end: 20070221
  4. ONDANSETRON [Suspect]
     Indication: PREMEDICATION
     Dosage: TEXT:8 MG DAILY
     Route: 042
     Dates: start: 20070222, end: 20070222
  5. MANNITOL [Suspect]
     Indication: FLUID REPLACEMENT
     Dosage: TEXT:500 ML DAILY
     Dates: start: 20070222, end: 20070222

REACTIONS (1)
  - MYOCARDIAL INFARCTION [None]
